FAERS Safety Report 5008045-8 (Version None)
Quarter: 2006Q2

REPORT INFORMATION
  Report Type: 
  Country: None (occurrence: None)
  Receive Date: 20060404
  Receipt Date: 20050718
  Transmission Date: 20061013
  Serious: Yes (Hospitalization, Other)
  Sender: FDA-Public Use
  Company Number: 2005080583

PATIENT
  Age: 12 Year
  Sex: Female

DRUGS (8)
  1. GEODON [Suspect]
     Indication: AFFECTIVE DISORDER
     Dosage: 80 MG (80 MG, 1 IN 1 D),
     Dates: start: 20040101, end: 20050423
  2. GEODON [Suspect]
     Indication: ANXIETY
     Dosage: 80 MG (80 MG, 1 IN 1 D),
     Dates: start: 20040101, end: 20050423
  3. GEODON [Suspect]
     Indication: INSOMNIA
     Dosage: 80 MG (80 MG, 1 IN 1 D),
     Dates: start: 20040101, end: 20050423
  4. GEODON [Suspect]
     Indication: OBESITY
     Dosage: 80 MG (80 MG, 1 IN 1 D),
     Dates: start: 20040101, end: 20050423
  5. ZOLOFT [Suspect]
  6. TOPAMAX [Concomitant]
  7. ADDERALL XR  (AMFETAMINE ASPARTATE, AMFETAMINE SULFATE, DEXAMFETAMINE [Concomitant]
  8. BENADRYL [Concomitant]

REACTIONS (1)
  - ELECTROCARDIOGRAM QT PROLONGED [None]
